FAERS Safety Report 12364248 (Version 2)
Quarter: 2018Q2

REPORT INFORMATION
  Report Type: Spontaneous
  Country: US (occurrence: US)
  Receive Date: 20160512
  Receipt Date: 20180618
  Transmission Date: 20180711
  Serious: Yes (Hospitalization, Other)
  Sender: FDA-Public Use
  Company Number: US-IMPAX LABORATORIES, INC-2016-IPXL-00498

PATIENT
  Age: 47 Year
  Sex: Female

DRUGS (1)
  1. MINOCYCLINE HYDROCHLORIDE. [Suspect]
     Active Substance: MINOCYCLINE HYDROCHLORIDE
     Indication: ACNE
     Dosage: UNK
     Route: 065

REACTIONS (2)
  - Vasculitis [Recovering/Resolving]
  - Mononeuropathy multiplex [Recovering/Resolving]
